FAERS Safety Report 19436565 (Version 5)
Quarter: 2022Q4

REPORT INFORMATION
  Report Type: Report from Study
  Country: KR (occurrence: None)
  Receive Date: 20210618
  Receipt Date: 20221107
  Transmission Date: 20230112
  Serious: Yes (Hospitalization, Other)
  Sender: FDA-Public Use
  Company Number: 2021A494759

PATIENT
  Age: 23867 Day
  Sex: Male

DRUGS (11)
  1. OSIMERTINIB [Suspect]
     Active Substance: OSIMERTINIB
     Indication: Non-small cell lung cancer metastatic
     Route: 048
     Dates: start: 20210518, end: 20210607
  2. OSIMERTINIB [Suspect]
     Active Substance: OSIMERTINIB
     Indication: Non-small cell lung cancer metastatic
     Route: 048
     Dates: start: 20210615, end: 20210615
  3. SAVOLITINIB [Suspect]
     Active Substance: SAVOLITINIB
     Indication: Non-small cell lung cancer metastatic
     Route: 048
     Dates: start: 20210518, end: 20210607
  4. SAVOLITINIB [Suspect]
     Active Substance: SAVOLITINIB
     Indication: Non-small cell lung cancer metastatic
     Route: 048
     Dates: start: 20210615, end: 20210615
  5. ENTELON [Concomitant]
     Indication: Pulmonary embolism
     Route: 048
     Dates: start: 20201104, end: 20210602
  6. BEAROBAN [Concomitant]
     Indication: Paronychia
     Dates: start: 20210119
  7. RABIET [Concomitant]
     Indication: Prophylaxis
     Route: 048
     Dates: start: 20210203
  8. MYPOL [Concomitant]
     Indication: Cancer pain
     Route: 048
     Dates: start: 20210210, end: 20210603
  9. LYRICA [Concomitant]
     Active Substance: PREGABALIN
     Indication: Cancer pain
     Route: 048
     Dates: start: 20210413, end: 20210603
  10. NALOXONE HYDROCHLORIDE\OXYCODONE HYDROCHLORIDE [Concomitant]
     Active Substance: NALOXONE HYDROCHLORIDE\OXYCODONE HYDROCHLORIDE
     Indication: Cancer pain
     Dosage: 10/5; 10 MG BID
     Route: 048
     Dates: start: 20210413
  11. NALOXONE HYDROCHLORIDE\OXYCODONE HYDROCHLORIDE [Concomitant]
     Active Substance: NALOXONE HYDROCHLORIDE\OXYCODONE HYDROCHLORIDE
     Indication: Cancer pain
     Dosage: 20/10; 20 MG BID
     Route: 048
     Dates: start: 20210426

REACTIONS (2)
  - Dyspnoea [Recovering/Resolving]
  - Drug-induced liver injury [Recovered/Resolved]

NARRATIVE: CASE EVENT DATE: 20210529
